FAERS Safety Report 11794219 (Version 2)
Quarter: 2016Q3

REPORT INFORMATION
  Report Type: Spontaneous
  Country: IT (occurrence: HR)
  Receive Date: 20151202
  Receipt Date: 20160908
  Transmission Date: 20161109
  Serious: Yes (Life-Threatening, Hospitalization)
  Sender: FDA-Public Use
  Company Number: HR-FRI-1000081200

PATIENT
  Age: 79 Year
  Sex: Female
  Weight: 60 kg

DRUGS (7)
  1. NEBILET PLUS [Interacting]
     Active Substance: HYDROCHLOROTHIAZIDE\NEBIVOLOL HYDROCHLORIDE
     Dosage: 5 MG/ 12.5 MG
     Route: 048
     Dates: end: 20151015
  2. MONOPRIL PLUS [Concomitant]
     Dosage: 20MG/12.5 MG
     Route: 048
  3. RYTMONORM [Interacting]
     Active Substance: PROPAFENONE
     Dosage: 450 MG
  4. DIUVER [Concomitant]
     Active Substance: TORSEMIDE
     Route: 048
  5. NEBIVOLOL. [Interacting]
     Active Substance: NEBIVOLOL
     Dates: end: 20151015
  6. LERCANIL [Concomitant]
     Route: 048
  7. NEBIVOLOL. [Suspect]
     Active Substance: NEBIVOLOL
     Dosage: 5 MG
     Route: 048
     Dates: end: 20151015

REACTIONS (6)
  - Atrioventricular block complete [Recovered/Resolved]
  - Drug interaction [Recovered/Resolved]
  - Bradycardia [Recovered/Resolved]
  - Hypotension [Recovered/Resolved]
  - Overdose [Recovered/Resolved]
  - Acute kidney injury [Recovered/Resolved]

NARRATIVE: CASE EVENT DATE: 20151015
